FAERS Safety Report 8900834 (Version 1)
Quarter: 2012Q4

REPORT INFORMATION
  Report Type: 
  Country: GB (occurrence: GB)
  Receive Date: 20121109
  Receipt Date: 20121109
  Transmission Date: 20130627
  Serious: Yes (Other)
  Sender: FDA-Public Use
  Company Number: GB-ROCHE-1151195

PATIENT
  Sex: Female

DRUGS (3)
  1. IBANDRONIC ACID [Suspect]
     Indication: OSTEOPOROSIS
     Route: 048
  2. IBANDRONIC ACID [Suspect]
     Indication: OSTEOPENIA
  3. ANASTROZOLE [Suspect]
     Indication: BREAST CANCER
     Route: 065

REACTIONS (1)
  - Fracture [Unknown]
